FAERS Safety Report 6607226-7 (Version None)
Quarter: 2010Q1

REPORT INFORMATION
  Report Type: 
  Country: None (occurrence: None)
  Receive Date: 20100227
  Receipt Date: 20100219
  Transmission Date: 20100710
  Serious: Yes (Hospitalization)
  Sender: FDA-Public Use
  Company Number: US-JNJFOC-20100209400

PATIENT
  Sex: Male
  Weight: 104.33 kg

DRUGS (1)
  1. DURAGESIC-100 [Suspect]
     Indication: SPINAL DISORDER
     Dosage: 100UG/HR+100UG/HR = 200UG/HR
     Route: 062

REACTIONS (13)
  - BODY TEMPERATURE INCREASED [None]
  - CYST [None]
  - DEPRESSION [None]
  - HYPERHIDROSIS [None]
  - HYPOAESTHESIA [None]
  - INTERVERTEBRAL DISC DISORDER [None]
  - INTRACRANIAL HYPOTENSION [None]
  - JOINT SWELLING [None]
  - PAIN IN EXTREMITY [None]
  - SLEEP APNOEA SYNDROME [None]
  - STAPHYLOCOCCAL INFECTION [None]
  - STAPHYLOCOCCAL OSTEOMYELITIS [None]
  - SUTURE RUPTURE [None]
